FAERS Safety Report 20224664 (Version 4)
Quarter: 2022Q4

REPORT INFORMATION
  Report Type: Spontaneous
  Country: IN (occurrence: IN)
  Receive Date: 20211223
  Receipt Date: 20221021
  Transmission Date: 20230112
  Serious: Yes (Other)
  Sender: FDA-Public Use
  Company Number: IN-PFIZER INC-202101807372

PATIENT
  Age: 63 Year
  Sex: Female

DRUGS (4)
  1. PALBOCICLIB [Suspect]
     Active Substance: PALBOCICLIB
     Indication: Breast cancer
     Dosage: 125 MG
     Route: 048
     Dates: start: 20210626, end: 20211130
  2. PALBOCICLIB [Suspect]
     Active Substance: PALBOCICLIB
     Dosage: 125 MG, 1X/DAY (1 DAILY FOR 21 DAYS)
     Route: 048
     Dates: start: 20210629
  3. FEMARA [Concomitant]
     Active Substance: LETROZOLE
     Dosage: UNK, DAILY (1 DAILY FOR 3 MONTHS)
  4. OSTEOFOS [Concomitant]
     Dosage: 70 MG, WEEKLY (FOR 3 MONTHS)

REACTIONS (7)
  - Breast disorder [Not Recovered/Not Resolved]
  - Haemoglobin decreased [Unknown]
  - White blood cell count decreased [Unknown]
  - Abdominal discomfort [Unknown]
  - Asthenia [Unknown]
  - Arthralgia [Unknown]
  - Anosmia [Unknown]

NARRATIVE: CASE EVENT DATE: 20211211
